FAERS Safety Report 16907747 (Version 1)
Quarter: 2019Q4

REPORT INFORMATION
  Report Type: Spontaneous
  Country: US (occurrence: US)
  Receive Date: 20190819
  Receipt Date: 20190819
  Transmission Date: 20200122
  Serious: No
  Sender: FDA-Public Use
  Company Number: None

PATIENT
  Age: 55 Year
  Sex: Female

DRUGS (1)
  1. KISQALI [Suspect]
     Active Substance: RIBOCICLIB
     Dates: start: 201906

REACTIONS (4)
  - Cough [None]
  - Dysphonia [None]
  - Upper respiratory tract infection [None]
  - Pulmonary congestion [None]

NARRATIVE: CASE EVENT DATE: 20190819
